FAERS Safety Report 6204490-3 (Version None)
Quarter: 2009Q2

REPORT INFORMATION
  Report Type: 
  Country: None (occurrence: None)
  Receive Date: 20090527
  Receipt Date: 20090427
  Transmission Date: 20091009
  Serious: Yes (Hospitalization)
  Sender: FDA-Public Use
  Company Number: JP-PFIZER INC-2009206043

PATIENT
  Age: 57 Year

DRUGS (9)
  1. PREGABALIN [Suspect]
     Indication: DIABETIC NEUROPATHY
     Dosage: 300 MG, 2X/DAY
     Dates: start: 20080825
  2. PREGABALIN [Suspect]
     Dosage: 75 MG, 2X/DAY
     Dates: start: 20080628, end: 20080804
  3. PREGABALIN [Suspect]
     Dosage: 150 MG, 2X/DAY
     Dates: start: 20080804, end: 20080811
  4. PREGABALIN [Suspect]
     Dosage: 225 MG, 2X/DAY
     Dates: start: 20080811, end: 20080825
  5. JUVELA NICOTINATE [Concomitant]
     Dosage: UNK
     Route: 048
     Dates: start: 20051226
  6. AMARYL [Concomitant]
     Dosage: UNK
     Route: 048
     Dates: start: 20040416
  7. GLUCOBAY [Concomitant]
     Dosage: UNK
     Route: 048
     Dates: start: 20040416
  8. SELBEX [Concomitant]
     Dosage: UNK
     Dates: start: 20040416
  9. GLYCORAN [Concomitant]
     Dosage: UNK
     Route: 048
     Dates: start: 20040426

REACTIONS (1)
  - PNEUMONIA [None]
